FAERS Safety Report 5804291-1 (Version None)
Quarter: 2008Q3

REPORT INFORMATION
  Report Type: 
  Country: None (occurrence: None)
  Receive Date: 20080709
  Receipt Date: 20080701
  Transmission Date: 20090109
  Serious: Yes (Hospitalization)
  Sender: FDA-Public Use
  Company Number: DE-BRISTOL-MYERS SQUIBB COMPANY-14141402

PATIENT
  Age: 50 Year
  Sex: Female
  Weight: 100 kg

DRUGS (6)
  1. ERBITUX [Suspect]
     Indication: COLON CANCER METASTATIC
     Dosage: ERBITUX 5MG/ML. INTERRUPTED ON 10MAR08 AND RESTARTED ON 17MAR2008. RECENT INFUSION:25FEB2008
     Route: 042
     Dates: start: 20071112
  2. IRINOTECAN [Suspect]
     Indication: COLON CANCER METASTATIC
     Route: 042
  3. XELODA [Suspect]
     Indication: COLON CANCER METASTATIC
     Route: 048
     Dates: start: 20070424, end: 20080201
  4. ANTIBIOTIC THERAPY [Concomitant]
     Indication: CITROBACTER INFECTION
  5. DEXAMETHASONE [Concomitant]
     Route: 042
  6. ONDANSETRON [Concomitant]
     Route: 042

REACTIONS (1)
  - CYSTITIS HAEMORRHAGIC [None]
